FAERS Safety Report 5526584-8 (Version None)
Quarter: 2007Q4

REPORT INFORMATION
  Report Type: 
  Country: None (occurrence: None)
  Receive Date: 20071121
  Receipt Date: 20071121
  Transmission Date: 20080405
  Serious: No
  Sender: FDA-Public Use
  Company Number: None

PATIENT
  Sex: Female
  Weight: 90 kg

DRUGS (2)
  1. CYTARABINE [Suspect]
     Dosage: 16740 MG
     Dates: end: 20040828
  2. G-CSF (FILGRASTIM, AMGEN) [Suspect]
     Dosage: 5760 MG
     Dates: end: 20040909

REACTIONS (2)
  - HYPERGLYCAEMIA [None]
  - HYPONATRAEMIA [None]
